FAERS Safety Report 7946774 (Version 5)
Quarter: 2013Q2

REPORT INFORMATION
  Report Type: Report from Study
  Country: US (occurrence: US)
  Receive Date: 20110516
  Receipt Date: 20130423
  Transmission Date: 20140414
  Serious: Yes (Hospitalization, Other)
  Sender: FDA-Public Use
  Company Number: US-PFIZER INC-2011101765

PATIENT
  Age: 81 Year
  Sex: Female
  Weight: 52.61 kg

DRUGS (4)
  1. LYRICA [Suspect]
     Indication: NEUROPATHY PERIPHERAL
     Dosage: 50 MG, 2X/DAY
     Route: 048
  2. LYRICA [Suspect]
     Dosage: 75 MG, 2X/DAY
     Route: 048
     Dates: end: 2011
  3. ACETYLSALICYLIC ACID [Concomitant]
     Dosage: UNK
  4. ATENOLOL [Concomitant]
     Indication: BLOOD PRESSURE ABNORMAL
     Dosage: UNK

REACTIONS (5)
  - Myocardial infarction [Unknown]
  - Atrial fibrillation [Unknown]
  - Respiratory disorder [Unknown]
  - Dysgraphia [Unknown]
  - Nasopharyngitis [Unknown]
